FAERS Safety Report 9515006 (Version 1)
Quarter: 2013Q3

REPORT INFORMATION
  Report Type: Spontaneous
  Country: DE (occurrence: DE)
  Receive Date: 20130911
  Receipt Date: 20130911
  Transmission Date: 20140515
  Serious: Yes (Disabling, Other)
  Sender: FDA-Public Use
  Company Number: DE-RANBAXY-2013RR-72788

PATIENT
  Sex: Female

DRUGS (1)
  1. CEFUROX BASICS 500 MG TABLETTEN [Suspect]
     Indication: CYSTITIS
     Dosage: UNK
     Route: 065

REACTIONS (2)
  - Neck pain [Unknown]
  - Gastrointestinal mucosal disorder [Unknown]
